FAERS Safety Report 16345740 (Version 1)
Quarter: 2019Q2

REPORT INFORMATION
  Report Type: Spontaneous
  Country: ES (occurrence: ES)
  Receive Date: 20190523
  Receipt Date: 20190523
  Transmission Date: 20190711
  Serious: Yes (Other)
  Sender: FDA-Public Use
  Company Number: ES-CELLTRION INC.-2019ES021207

PATIENT

DRUGS (2)
  1. RITUXIMAB (UNKNOWN) [Suspect]
     Active Substance: RITUXIMAB
     Indication: NEUROMYELITIS OPTICA SPECTRUM DISORDER
     Dosage: 375 MG/M2, 1/WEEK, SOLUTION FOR INFUSION
     Route: 042
  2. TOCILIZUMAB. [Suspect]
     Active Substance: TOCILIZUMAB
     Indication: NEUROMYELITIS OPTICA SPECTRUM DISORDER
     Dosage: 8 MG/KG, EVERY 4 WEEKS; SOLUTION FOR INFUSION
     Route: 042

REACTIONS (4)
  - Immune thrombocytopenic purpura [Unknown]
  - Treatment failure [Unknown]
  - Off label use [Unknown]
  - Intentional product use issue [Unknown]
